FAERS Safety Report 11500850 (Version 1)
Quarter: 2015Q3

REPORT INFORMATION
  Report Type: Spontaneous
  Country: US (occurrence: None)
  Receive Date: 20150911
  Receipt Date: 20150911
  Transmission Date: 20151125
  Serious: Yes (Disabling, Other)
  Sender: FDA-Public Use
  Company Number: None

PATIENT
  Age: 57 Year
  Sex: Female
  Weight: 113.4 kg

DRUGS (7)
  1. METHOTREXATE [Concomitant]
     Active Substance: METHOTREXATE
  2. LISINOPRIL. [Concomitant]
     Active Substance: LISINOPRIL
  3. ORENCIA [Concomitant]
     Active Substance: ABATACEPT
  4. LISINOPRIL. [Suspect]
     Active Substance: LISINOPRIL
     Indication: HYPERTENSION
     Dosage: 1 PILL
     Route: 048
     Dates: start: 20150820, end: 20150902
  5. ALEVE [Concomitant]
     Active Substance: NAPROXEN SODIUM
  6. TRIAMTERINE-HCTZ [Concomitant]
  7. CITAPROLAM [Concomitant]

REACTIONS (6)
  - Product quality issue [None]
  - Feeling abnormal [None]
  - Product substitution issue [None]
  - Drug ineffective [None]
  - Tremor [None]
  - Headache [None]

NARRATIVE: CASE EVENT DATE: 20150820
